FAERS Safety Report 16271001 (Version 6)
Quarter: 2020Q2

REPORT INFORMATION
  Report Type: Spontaneous
  Country: FR (occurrence: FR)
  Receive Date: 20190503
  Receipt Date: 20200427
  Transmission Date: 20200713
  Serious: Yes (Death, Life-Threatening, Other)
  Sender: FDA-Public Use
  Company Number: FR-SA-2019SA120524

PATIENT
  Age: 41 Year
  Sex: Male

DRUGS (10)
  1. TRANXENE [Concomitant]
     Active Substance: CLORAZEPATE DIPOTASSIUM
     Dosage: 20 MG; 7 BLISTERS
  2. OXAZEPAM. [Suspect]
     Active Substance: OXAZEPAM
     Dosage: UNK
  3. BUPRENORPHINE. [Suspect]
     Active Substance: BUPRENORPHINE
     Dosage: UNK
     Route: 060
  4. LORMETAZEPAM [Suspect]
     Active Substance: LORMETAZEPAM
     Dosage: 2 MG 2 BLISTERS
  5. CYAMEMAZINE [Suspect]
     Active Substance: CYAMEMAZINE
     Dosage: 14 BLISTERS OF TERCIAN 25 MG
  6. NICOTINE. [Suspect]
     Active Substance: NICOTINE
     Indication: COMPLETED SUICIDE
     Dosage: 7 NICOTINE PATCHES ON THE BODY. THERE WERE 14 NICOTINE PATCHES (21 MG) IN THE BIN
     Route: 062
  7. NORDAZEPAM [Suspect]
     Active Substance: NORDAZEPAM
     Dosage: UNK
  8. NICOTINE. [Suspect]
     Active Substance: NICOTINE
     Dosage: 1.5 MG CAPSULES, 5 BLISTERS, 5 EMPTY BLISTERS OF NICOTINE TABLETS (NICOPASS? 1.5 MG) IN THE BIN.
     Route: 048
  9. NICOTINE. [Suspect]
     Active Substance: NICOTINE
     Dosage: AS NECESSARY, TRANSDERMAL PATCHES, 2 DOSAGE FORM
     Route: 062
  10. CANNABIS [Concomitant]
     Active Substance: CANNABIS SATIVA SUBSP. INDICA TOP

REACTIONS (20)
  - Secretion discharge [Fatal]
  - Diffuse alveolar damage [Fatal]
  - Muscle rigidity [Fatal]
  - Asphyxia [Fatal]
  - Pulmonary congestion [Fatal]
  - Tobacco poisoning [Fatal]
  - Induration [Fatal]
  - Toxicity to various agents [Fatal]
  - Intentional overdose [Fatal]
  - Pulmonary oedema [Fatal]
  - Scar [Fatal]
  - Overdose [Fatal]
  - Visceral congestion [Fatal]
  - Haemorrhage [Fatal]
  - Conjunctival hyperaemia [Fatal]
  - Cyanosis [Fatal]
  - Erythema [Fatal]
  - Drug abuse [Fatal]
  - Petechiae [Fatal]
  - Arteriosclerosis coronary artery [Fatal]

NARRATIVE: CASE EVENT DATE: 2017
